FAERS Safety Report 22045741 (Version 5)
Quarter: 2023Q4

REPORT INFORMATION
  Report Type: Spontaneous
  Country: US (occurrence: US)
  Receive Date: 20230228
  Receipt Date: 20231120
  Transmission Date: 20240109
  Serious: Yes (Hospitalization, Other)
  Sender: FDA-Public Use
  Company Number: US-PFIZER INC-PV202300038578

PATIENT
  Age: 83 Year
  Sex: Female

DRUGS (4)
  1. IBRANCE [Suspect]
     Active Substance: PALBOCICLIB
     Indication: Breast cancer female
     Dosage: 100 MG
  2. IBRANCE [Suspect]
     Active Substance: PALBOCICLIB
     Indication: Oestrogen receptor assay
     Dosage: 75 MG, CYCLIC [FOR 21 CONSECUTIVE DAYS, FOLLOWED BY 7 DAYS OFF]
     Route: 048
  3. AROMASIN [Suspect]
     Active Substance: EXEMESTANE
     Dosage: UNK
  4. FEMARA [Concomitant]
     Active Substance: LETROZOLE
     Dosage: UNK

REACTIONS (5)
  - White blood cell count decreased [Unknown]
  - Cataract [Recovering/Resolving]
  - Neutropenia [Unknown]
  - Pyrexia [Unknown]
  - Product prescribing error [Unknown]
